FAERS Safety Report 19928537 (Version 3)
Quarter: 2022Q4

REPORT INFORMATION
  Report Type: Spontaneous
  Country: DE (occurrence: DE)
  Receive Date: 20211007
  Receipt Date: 20221209
  Transmission Date: 20230113
  Serious: Yes (Death, Hospitalization, Other)
  Sender: FDA-Public Use
  Company Number: DE-ALKEM LABORATORIES LIMITED-DE-ALKEM-2021-06120

PATIENT
  Age: 63 Year
  Sex: Male
  Weight: 56 kg

DRUGS (13)
  1. GABAPENTIN [Suspect]
     Active Substance: GABAPENTIN
     Indication: Toxic neuropathy
     Dosage: UNK
     Route: 065
  2. GABAPENTIN [Suspect]
     Active Substance: GABAPENTIN
     Dosage: 1800 MILLIGRAM
     Route: 065
     Dates: end: 202103
  3. PREGABALIN [Suspect]
     Active Substance: PREGABALIN
     Indication: Toxic neuropathy
     Dosage: UNK
     Route: 065
     Dates: start: 20210608
  4. PREGABALIN [Suspect]
     Active Substance: PREGABALIN
     Dosage: UNK
     Route: 065
  5. NIVOLUMAB [Suspect]
     Active Substance: NIVOLUMAB
     Indication: Squamous cell carcinoma of head and neck
     Dosage: 240 MILLIGRAM (EVERY 4 WEEKS)
     Route: 042
     Dates: start: 20200729, end: 20210604
  6. NIVOLUMAB [Suspect]
     Active Substance: NIVOLUMAB
     Dosage: 240 MILLIGRAM, ONCE IN 2 WEEKS
     Route: 042
     Dates: start: 20200729, end: 20210604
  7. CHOLECALCIFEROL [Concomitant]
     Active Substance: CHOLECALCIFEROL
     Indication: Product used for unknown indication
     Dosage: UNK
     Route: 065
  8. FORMOTEROL [Concomitant]
     Active Substance: FORMOTEROL
     Indication: Lung disorder
     Dosage: 24 MICROGRAM
     Route: 065
     Dates: end: 202103
  9. QUININE SULFATE [Concomitant]
     Active Substance: QUININE SULFATE
     Indication: Product used for unknown indication
     Dosage: 165.74 MILLIGRAM
     Route: 065
     Dates: end: 202103
  10. METAMIZOLE [Concomitant]
     Active Substance: METAMIZOLE
     Indication: Product used for unknown indication
     Dosage: 150 MILLIGRAM
     Route: 065
  11. METAMIZOLE [Concomitant]
     Active Substance: METAMIZOLE
     Dosage: 1500 MILLIGRAM
     Route: 065
     Dates: end: 202103
  12. OXYCODONE [Concomitant]
     Active Substance: OXYCODONE
     Indication: Product used for unknown indication
     Dosage: 60 MILLIGRAM
     Route: 065
     Dates: end: 202103
  13. PANTOPRAZOLE [Concomitant]
     Active Substance: PANTOPRAZOLE
     Indication: Prophylaxis
     Dosage: 40 MILLIGRAM
     Route: 065

REACTIONS (15)
  - Malignant neoplasm progression [Fatal]
  - Neck pain [Unknown]
  - Headache [Unknown]
  - Hypothyroidism [Unknown]
  - Toxic neuropathy [Unknown]
  - Somnolence [Unknown]
  - Delirium [Unknown]
  - Restlessness [Not Recovered/Not Resolved]
  - Disturbance in attention [Recovering/Resolving]
  - Hypokalaemia [Recovering/Resolving]
  - Agitation [Unknown]
  - Fear [Unknown]
  - Hypocalcaemia [Unknown]
  - Nausea [Recovered/Resolved]
  - Off label use [Unknown]

NARRATIVE: CASE EVENT DATE: 20200730
